FAERS Safety Report 7031765-0 (Version None)
Quarter: 2010Q4

REPORT INFORMATION
  Report Type: 
  Country: None (occurrence: None)
  Receive Date: 20101007
  Receipt Date: 20100929
  Transmission Date: 20110411
  Serious: Yes (Hospitalization)
  Sender: FDA-Public Use
  Company Number: US-BIOGENIDEC-2010BI031979

PATIENT
  Age: 44 Year
  Sex: Female

DRUGS (1)
  1. TYSABRI [Suspect]
     Indication: MULTIPLE SCLEROSIS
     Route: 042
     Dates: start: 20080821

REACTIONS (6)
  - BACK PAIN [None]
  - BLINDNESS UNILATERAL [None]
  - GAIT DISTURBANCE [None]
  - MENORRHAGIA [None]
  - MULTIPLE SCLEROSIS [None]
  - VISUAL FIELD DEFECT [None]
